FAERS Safety Report 4946410-5 (Version None)
Quarter: 2006Q1

REPORT INFORMATION
  Report Type: 
  Country: None (occurrence: None)
  Receive Date: 20060317
  Receipt Date: 20060309
  Transmission Date: 20060701
  Serious: Yes (Death)
  Sender: FDA-Public Use
  Company Number: US-AVENTIS-200612260US

PATIENT
  Age: 88 Year
  Sex: Female

DRUGS (8)
  1. ANZEMET [Suspect]
     Indication: NAUSEA
     Route: 041
     Dates: start: 20060208, end: 20060208
  2. LANOXIN [Concomitant]
  3. LASIX [Concomitant]
  4. K-DUR 10 [Concomitant]
  5. HYZAAR [Concomitant]
     Dosage: DOSE: 50/12.5
  6. LOVENOX [Concomitant]
  7. OS-CAL 500+D [Concomitant]
  8. FOSAMAX [Concomitant]

REACTIONS (1)
  - CARDIO-RESPIRATORY ARREST [None]
